FAERS Safety Report 8244310-9 (Version None)
Quarter: 2012Q1

REPORT INFORMATION
  Report Type: 
  Country: None (occurrence: None)
  Receive Date: 20120329
  Receipt Date: 20120327
  Transmission Date: 20120608
  Serious: No
  Sender: FDA-Public Use
  Company Number: US-PFIZER INC-2012078766

PATIENT
  Sex: Male
  Weight: 35.374 kg

DRUGS (4)
  1. METHYLPHENIDATE [Concomitant]
     Dosage: UNK, 2X/DAY
  2. SERTRALINE [Concomitant]
     Dosage: UNK, 1X/DAY
  3. GENOTROPIN [Suspect]
     Indication: BLOOD GROWTH HORMONE
     Dosage: 2 MG, 1X/DAY
     Dates: start: 20120321
  4. RISPERIDONE [Concomitant]
     Dosage: UNK, 2X/DAY

REACTIONS (2)
  - DECREASED APPETITE [None]
  - RASH [None]
